FAERS Safety Report 5611650-9 (Version None)
Quarter: 2008Q1

REPORT INFORMATION
  Report Type: 
  Country: None (occurrence: None)
  Receive Date: 20080201
  Receipt Date: 20080121
  Transmission Date: 20080703
  Serious: Yes (Other)
  Sender: FDA-Public Use
  Company Number: AU-PFIZER INC-2008008579

PATIENT

DRUGS (1)
  1. NELFINAVIR MESILATE [Suspect]
     Indication: HIV INFECTION

REACTIONS (4)
  - CARDIOGENIC SHOCK [None]
  - MYOCARDIAL INFARCTION [None]
  - MYOCARDIAL ISCHAEMIA [None]
  - TYPE 2 DIABETES MELLITUS [None]
